FAERS Safety Report 10292918 (Version 1)
Quarter: 2014Q3

REPORT INFORMATION
  Report Type: Spontaneous
  Country: US (occurrence: US)
  Receive Date: 20140710
  Receipt Date: 20140710
  Transmission Date: 20150326
  Serious: No
  Sender: FDA-Public Use
  Company Number: US-SA-2013SA105314

PATIENT
  Sex: Male

DRUGS (4)
  1. VICTOZA [Suspect]
     Active Substance: LIRAGLUTIDE
     Route: 065
     Dates: start: 20130808
  2. AMARYL [Suspect]
     Active Substance: GLIMEPIRIDE
     Dosage: DOSE - 1 PILL PER DAY.
     Route: 065
  3. AMARYL [Suspect]
     Active Substance: GLIMEPIRIDE
     Dosage: DOSE - TWO PILLS A DAY
     Route: 065
  4. VICTOZA [Suspect]
     Active Substance: LIRAGLUTIDE
     Route: 065

REACTIONS (2)
  - Blood glucose decreased [Unknown]
  - Musculoskeletal chest pain [Unknown]
